FAERS Safety Report 4686919-5 (Version None)
Quarter: 2005Q2

REPORT INFORMATION
  Report Type: 
  Country: None (occurrence: None)
  Receive Date: 20050608
  Receipt Date: 20050527
  Transmission Date: 20051028
  Serious: Yes (Other)
  Sender: FDA-Public Use
  Company Number: 2005081480

PATIENT
  Age: 47 Year
  Sex: Male

DRUGS (2)
  1. BEXTRA [Suspect]
     Indication: ARTHRALGIA
     Dosage: ORAL
     Route: 048
  2. CORTICOSTEROIDS NOS [Concomitant]

REACTIONS (3)
  - BRONCHITIS [None]
  - CONDITION AGGRAVATED [None]
  - HAEMOPTYSIS [None]
